FAERS Safety Report 8443307-3 (Version None)
Quarter: 2012Q2

REPORT INFORMATION
  Report Type: 
  Country: None (occurrence: None)
  Receive Date: 20120618
  Receipt Date: 20120530
  Transmission Date: 20120825
  Serious: No
  Sender: FDA-Public Use
  Company Number: US-ASTRAZENECA-2011SE41577

PATIENT

DRUGS (2)
  1. NEXIUM [Suspect]
     Dosage: TAKING EVERYDAY
     Route: 048
     Dates: start: 20010101
  2. NEXIUM [Suspect]
     Route: 048

REACTIONS (3)
  - BONE DENSITY DECREASED [None]
  - MULTIPLE FRACTURES [None]
  - OSTEOPOROSIS [None]
